FAERS Safety Report 7051587-4 (Version None)
Quarter: 2010Q4

REPORT INFORMATION
  Report Type: 
  Country: None (occurrence: None)
  Receive Date: 20101019
  Receipt Date: 20101014
  Transmission Date: 20110411
  Serious: Yes (Other)
  Sender: FDA-Public Use
  Company Number: PL-ROCHE-720141

PATIENT
  Sex: Female
  Weight: 47 kg

DRUGS (5)
  1. ROACTEMRA [Suspect]
     Indication: RHEUMATOID ARTHRITIS
     Route: 042
     Dates: start: 20091020, end: 20100713
  2. MTX [Concomitant]
     Indication: RHEUMATOID ARTHRITIS
     Route: 048
     Dates: start: 19930101
  3. FEBROFEN [Concomitant]
     Indication: RHEUMATOID ARTHRITIS
     Dosage: DOSE: 0.2
     Route: 048
     Dates: start: 20080101
  4. POLPRAZOL [Concomitant]
     Indication: GASTRITIS PROPHYLAXIS
     Dosage: DOSE: 0.02
     Route: 048
     Dates: start: 20050101
  5. FOLIC ACID [Concomitant]
     Dosage: DOSE: 0.015
     Route: 048
     Dates: start: 19930101

REACTIONS (4)
  - ERYTHEMA [None]
  - FACE OEDEMA [None]
  - FIBRIN D DIMER INCREASED [None]
  - OROPHARYNGEAL PAIN [None]
